FAERS Safety Report 13089955 (Version 4)
Quarter: 2017Q1

REPORT INFORMATION
  Report Type: Report from Study
  Country: JP (occurrence: JP)
  Receive Date: 20170105
  Receipt Date: 20170207
  Transmission Date: 20170428
  Serious: Yes (Hospitalization)
  Sender: FDA-Public Use
  Company Number: JP-MERRIMACK PHARMACEUTICALS, INC.-MER-2016-000189

PATIENT

DRUGS (7)
  1. ONIVYDE [Suspect]
     Active Substance: IRINOTECAN HYDROCHLORIDE
     Indication: PANCREATIC CARCINOMA METASTATIC
     Dosage: 163.8 MG, ONE TIME DOSE
     Route: 042
     Dates: start: 20161208, end: 20161208
  2. CALCIUM LEVOFOLINATE [Suspect]
     Active Substance: LEVOLEUCOVORIN CALCIUM
     Dosage: UNK, 2X A MONTH
     Route: 042
     Dates: start: 20160720, end: 20161124
  3. TEPRENONE [Concomitant]
     Active Substance: TEPRENONE
     Indication: PRODUCT USED FOR UNKNOWN INDICATION
     Dosage: UNK
  4. ONIVYDE [Suspect]
     Active Substance: IRINOTECAN HYDROCHLORIDE
     Dosage: UNK, 2X A MONTH
     Route: 042
     Dates: start: 20160720, end: 20161124
  5. CALCIUM LEVOFOLINATE [Suspect]
     Active Substance: LEVOLEUCOVORIN CALCIUM
     Indication: PANCREATIC CARCINOMA METASTATIC
     Dosage: 409.6 MG, ONE TIME DOSE
     Route: 042
     Dates: start: 20161208, end: 20161208
  6. 5-FLUOROURACIL                     /00098801/ [Suspect]
     Active Substance: FLUOROURACIL
     Dosage: UNK, 2X A MONTH
     Route: 042
     Dates: start: 20160720, end: 20161124
  7. 5-FLUOROURACIL                     /00098801/ [Suspect]
     Active Substance: FLUOROURACIL
     Indication: PANCREATIC CARCINOMA METASTATIC
     Dosage: 4915.2 MG, ONE TIME DOSE
     Route: 042
     Dates: start: 20161208, end: 20161210

REACTIONS (1)
  - Embolism venous [Not Recovered/Not Resolved]

NARRATIVE: CASE EVENT DATE: 20161220
